FAERS Safety Report 13691675 (Version 1)
Quarter: 2017Q2

REPORT INFORMATION
  Report Type: Spontaneous
  Country: None (occurrence: US)
  Receive Date: 20170626
  Receipt Date: 20170626
  Transmission Date: 20170830
  Serious: No
  Sender: FDA-Public Use
  Company Number: US-IDENTI PHARMACEUTICALS LLC -2022511

PATIENT
  Age: 75 Year
  Sex: Male
  Weight: 113.64 kg

DRUGS (2)
  1. UNKNOWN HIGH BLOOD PRESSURE MEDICATION [Concomitant]
  2. FLUOCINOLONE ACETONIDE. [Suspect]
     Active Substance: FLUOCINOLONE ACETONIDE
     Indication: PRURITUS
     Route: 061
     Dates: start: 20160910, end: 20160917

REACTIONS (1)
  - Drug ineffective [Unknown]

NARRATIVE: CASE EVENT DATE: 20160910
